FAERS Safety Report 5668093-1 (Version None)
Quarter: 2008Q1

REPORT INFORMATION
  Report Type: 
  Country: None (occurrence: None)
  Receive Date: 20080313
  Receipt Date: 20080303
  Transmission Date: 20080703
  Serious: Yes (Other)
  Sender: FDA-Public Use
  Company Number: 2008005355

PATIENT
  Age: 11 Year
  Sex: Male
  Weight: 39.9165 kg

DRUGS (1)
  1. LISTERINE AGENT COOL BLUE BUBBLE BLAST (NO ACTIVE INGREDIENT) [Suspect]
     Indication: DENTAL DISORDER PROPHYLAXIS
     Dosage: 10 ML DAILY,ORAL
     Route: 048
     Dates: start: 20070101, end: 20080202

REACTIONS (2)
  - DIARRHOEA [None]
  - MALAISE [None]
